FAERS Safety Report 19994595 (Version 1)
Quarter: 2021Q4

REPORT INFORMATION
  Report Type: Spontaneous
  Country: US (occurrence: US)
  Receive Date: 20211025
  Receipt Date: 20211025
  Transmission Date: 20220303
  Serious: Yes (Hospitalization)
  Sender: FDA-Public Use
  Company Number: None

PATIENT
  Age: 63 Year
  Sex: Male

DRUGS (1)
  1. STELARA [Suspect]
     Active Substance: USTEKINUMAB
     Indication: Crohn^s disease
     Dosage: OTHER DOSE:1 SYRINGE ;OTHER FREQUENCY:EVERY 8 WEEKS;
     Route: 030
     Dates: start: 20201203

REACTIONS (2)
  - Condition aggravated [None]
  - Gastrointestinal obstruction [None]

NARRATIVE: CASE EVENT DATE: 20211019
